FAERS Safety Report 7473186 (Version 3)
Quarter: 2014Q2

REPORT INFORMATION
  Report Type: Report from Study
  Country: MX (occurrence: MX)
  Receive Date: 20100714
  Receipt Date: 20140526
  Transmission Date: 20141212
  Serious: Yes (Hospitalization, Other)
  Sender: FDA-Public Use
  Company Number: PHHY2010MX43326

PATIENT
  Sex: Female

DRUGS (3)
  1. CO-DIOVAN [Suspect]
     Indication: HYPERTENSION
     Dosage: 1 DF (160/12.5MG), DAILY
     Dates: start: 20090710
  2. CO-DIOVAN [Suspect]
     Dosage: 1 DF, (160/ 12,5 MG) DAILY
     Route: 048
  3. CO-DIOVAN [Suspect]
     Dosage: 2 DF (320/UNK MG), DAILY
     Route: 048

REACTIONS (4)
  - Hernia [Not Recovered/Not Resolved]
  - General physical health deterioration [Unknown]
  - Blood pressure increased [Unknown]
  - Overdose [Not Recovered/Not Resolved]
